FAERS Safety Report 5572198-3 (Version None)
Quarter: 2007Q4

REPORT INFORMATION
  Report Type: 
  Country: None (occurrence: None)
  Receive Date: 20071221
  Receipt Date: 20071217
  Transmission Date: 20080405
  Serious: Yes (Other)
  Sender: FDA-Public Use
  Company Number: US-GENENTECH-253060

PATIENT
  Age: 74 Year
  Sex: Female

DRUGS (3)
  1. AVASTIN [Suspect]
     Indication: NON-SMALL CELL LUNG CANCER
  2. GEMZAR [Concomitant]
     Indication: NON-SMALL CELL LUNG CANCER
  3. TAXOTERE [Concomitant]
     Indication: NON-SMALL CELL LUNG CANCER

REACTIONS (1)
  - PNEUMOTHORAX [None]
